FAERS Safety Report 5467615-3 (Version None)
Quarter: 2007Q3

REPORT INFORMATION
  Report Type: 
  Country: None (occurrence: None)
  Receive Date: 20070925
  Receipt Date: 20070921
  Transmission Date: 20080115
  Serious: Yes (Hospitalization, Other)
  Sender: FDA-Public Use
  Company Number: DE-MERCK-0708DEU00543

PATIENT
  Age: 48 Year
  Sex: Female

DRUGS (5)
  1. FOSAMAX [Suspect]
     Indication: OSTEOPOROSIS
     Route: 048
     Dates: start: 20020101, end: 20060501
  2. ASPIRIN [Concomitant]
     Route: 048
     Dates: start: 20010101
  3. SIMVASTATIN [Concomitant]
     Route: 048
     Dates: start: 20010101
  4. OMEPRAZOLE [Concomitant]
     Route: 065
     Dates: start: 20010101
  5. ACETAMINOPHEN [Concomitant]
     Route: 065

REACTIONS (6)
  - ABSCESS [None]
  - ABSCESS JAW [None]
  - OSTEOMYELITIS [None]
  - OSTEONECROSIS [None]
  - PARAPHARYNGEAL ABSCESS [None]
  - TOOTH DISORDER [None]
